FAERS Safety Report 14359612 (Version 2)
Quarter: 2018Q1

REPORT INFORMATION
  Report Type: Spontaneous
  Country: US (occurrence: US)
  Receive Date: 20180105
  Receipt Date: 20180105
  Transmission Date: 20180509
  Serious: No
  Sender: FDA-Public Use
  Company Number: -SAAVPROD-BI2016BI080150

PATIENT
  Sex: Female

DRUGS (1)
  1. RANITIDINE HYDROCHLORIDE. [Suspect]
     Active Substance: RANITIDINE HYDROCHLORIDE
     Indication: PRODUCT USED FOR UNKNOWN INDICATION
     Route: 048
     Dates: start: 20161117

REACTIONS (7)
  - Angina pectoris [Unknown]
  - Chest pain [Unknown]
  - Heart rate irregular [Unknown]
  - Tremor [Unknown]
  - Asthenia [Unknown]
  - Dyspepsia [Unknown]
  - Anxiety [Unknown]

NARRATIVE: CASE EVENT DATE: 20161117
